FAERS Safety Report 8760152 (Version 2)
Quarter: 2012Q4

REPORT INFORMATION
  Report Type: Spontaneous
  Country: US (occurrence: None)
  Receive Date: 20120817
  Receipt Date: 20121105
  Transmission Date: 20130627
  Serious: Yes (Death, Hospitalization)
  Sender: FDA-Public Use
  Company Number: UTC-021770

PATIENT
  Age: 60 Year
  Sex: Female
  Weight: 63.63 kg

DRUGS (2)
  1. REMODULIN [Suspect]
     Indication: CHRONIC PULMONARY HEART DISEASE
     Dosage: 28.8 ug/kg (0.02 ug/kg,1 in 1 min),Intravenous drip
     Route: 041
     Dates: start: 20110819
  2. REMODULIN [Suspect]
     Indication: CHRONIC PULMONARY HEART DISEASE

REACTIONS (6)
  - Shock haemorrhagic [None]
  - Gastrointestinal haemorrhage [None]
  - Hepatic cirrhosis [None]
  - Pulmonary hypertension [None]
  - Pyrexia [None]
  - Oesophageal varices haemorrhage [None]
